FAERS Safety Report 18087511 (Version 1)
Quarter: 2020Q3

REPORT INFORMATION
  Report Type: Spontaneous
  Country: AU (occurrence: AU)
  Receive Date: 20200729
  Receipt Date: 20200729
  Transmission Date: 20201103
  Serious: Yes (Hospitalization)
  Sender: FDA-Public Use
  Company Number: AU-COLLEGIUM PHARMACEUTICAL, INC.-AU-2020COL000553

PATIENT
  Age: 73 Year
  Sex: Male
  Weight: 81.3 kg

DRUGS (12)
  1. TURMERIC                           /01079602/ [Concomitant]
     Active Substance: HERBALS\TURMERIC
     Indication: ROUTINE HEALTH MAINTENANCE
     Dosage: UNK
     Dates: start: 2017
  2. OLMESARTAN [Concomitant]
     Active Substance: OLMESARTAN
     Indication: HYPERTENSION
     Dosage: UNK
     Dates: start: 20140701
  3. SYMBICORT [Concomitant]
     Active Substance: BUDESONIDE\FORMOTEROL FUMARATE DIHYDRATE
     Indication: ASTHMA
     Dosage: UNK
     Dates: start: 2009
  4. VENTOLIN [Concomitant]
     Active Substance: ALBUTEROL SULFATE
     Indication: ASTHMA
     Dosage: UNK
     Dates: start: 2009
  5. MULTIVITAMIN                       /07504101/ [Concomitant]
     Active Substance: VITAMINS
     Indication: ROUTINE HEALTH MAINTENANCE
     Dosage: 1 DF, QD
     Route: 048
     Dates: start: 2017
  6. FLUZONE INTRADERMAL [Concomitant]
     Active Substance: INFLUENZA A VIRUS A/CALIFORNIA/7/2009 X-179A (H1N1) ANTIGEN (FORMALDEHYDE INACTIVATED)\INFLUENZA A VIRUS A/VICTORIA/210/2009 X-187 (H3N2) ANTIGEN (FORMALDEHYDE INACTIVATED)\INFLUENZA B VIRUS B/BRISBANE/60/2008 ANTIGEN (FORMALDEHYDE INACTIVATED)
     Indication: INFLUENZA IMMUNISATION
     Dosage: UNK, SINGLE, ON RIGHT DELTOID
     Route: 030
     Dates: start: 20190529, end: 20200529
  7. TAPENTADOL [Suspect]
     Active Substance: TAPENTADOL
     Indication: KNEE ARTHROPLASTY
     Dosage: UNK
     Route: 048
     Dates: start: 202006
  8. TAPENTADOL [Suspect]
     Active Substance: TAPENTADOL
     Indication: PROCEDURAL PAIN
  9. AMLODIPINE [Concomitant]
     Active Substance: AMLODIPINE BESYLATE
     Indication: HYPERTENSION
     Dosage: UNK
     Dates: start: 20140701
  10. HYDROCHLOROTHIAZIDE. [Concomitant]
     Active Substance: HYDROCHLOROTHIAZIDE
     Indication: HYPERTENSION
     Dosage: UNK
     Dates: start: 20140701
  11. VITAMIN C [Concomitant]
     Active Substance: ASCORBIC ACID
     Indication: ROUTINE HEALTH MAINTENANCE
     Dosage: UNK
     Dates: start: 2017
  12. MAGNESIUM AMINO ACID CHELATE W/MAGN/08546401/ [Concomitant]
     Indication: ROUTINE HEALTH MAINTENANCE
     Dosage: UNK
     Dates: start: 201704

REACTIONS (2)
  - Gastrooesophageal reflux disease [Recovered/Resolved]
  - Nausea [Recovered/Resolved]

NARRATIVE: CASE EVENT DATE: 20200615
